FAERS Safety Report 19135331 (Version 1)
Quarter: 2021Q2

REPORT INFORMATION
  Report Type: Spontaneous
  Country: TW (occurrence: TW)
  Receive Date: 20210414
  Receipt Date: 20210414
  Transmission Date: 20210717
  Serious: Yes (Other)
  Sender: FDA-Public Use
  Company Number: TW-BAYER-2021-121463

PATIENT
  Age: 65 Year
  Sex: Male

DRUGS (3)
  1. NEXAVAR [Suspect]
     Active Substance: SORAFENIB
     Indication: HEPATIC CANCER METASTATIC
     Dosage: 1 TABLET IN THE MORNING, 2 TABLETS AT NIGHT
     Route: 048
     Dates: start: 2020, end: 2020
  2. NEXAVAR [Suspect]
     Active Substance: SORAFENIB
     Indication: HEPATIC CANCER METASTATIC
     Dosage: 1 DF, BID
     Route: 048
     Dates: start: 2017, end: 2020
  3. STIVARGA [Suspect]
     Active Substance: REGORAFENIB
     Dosage: 2 DF, QD
     Route: 048
     Dates: start: 2020

REACTIONS (8)
  - Adverse drug reaction [None]
  - Alpha 1 foetoprotein increased [None]
  - Off label use [None]
  - Metastases to lung [None]
  - Hypertension [Recovering/Resolving]
  - Off label use [None]
  - Palmar-plantar erythrodysaesthesia syndrome [Recovering/Resolving]
  - Antidiarrhoeal supportive care [Recovering/Resolving]

NARRATIVE: CASE EVENT DATE: 2017
